FAERS Safety Report 21331933 (Version 1)
Quarter: 2022Q3

REPORT INFORMATION
  Report Type: Spontaneous
  Country: US (occurrence: None)
  Receive Date: 20220913
  Receipt Date: 20220913
  Transmission Date: 20221027
  Serious: Yes (Death)
  Sender: FDA-Public Use
  Company Number: None

PATIENT
  Age: 87 Year
  Sex: Female

DRUGS (13)
  1. PROLIA [Suspect]
     Active Substance: DENOSUMAB
     Indication: Osteopenia
     Dosage: OTHER FREQUENCY : 1 Q 6 MONTH;?
     Route: 058
     Dates: start: 20220322, end: 20220805
  2. AMANTADINE [Concomitant]
     Active Substance: AMANTADINE
  3. VITAMIN B12 [Concomitant]
     Active Substance: CYANOCOBALAMIN
  4. CELEBREX [Concomitant]
     Active Substance: CELECOXIB
  5. FLUOXETINE [Concomitant]
     Active Substance: FLUOXETINE HYDROCHLORIDE
  6. GINKGO [Concomitant]
     Active Substance: GINKGO
  7. LISINOPRIL [Concomitant]
     Active Substance: LISINOPRIL
  8. LOVASTATIN [Concomitant]
     Active Substance: LOVASTATIN
  9. MULTI-VITAMIN [Concomitant]
     Active Substance: .ALPHA.-TOCOPHEROL ACETATE, DL-\ASCORBIC ACID\CYANOCOBALAMIN\FLUORIDE ION\FOLIC ACID\NIACIN\PYRIDOXI
  10. MYRBETRIQ [Concomitant]
     Active Substance: MIRABEGRON
  11. NAMENDA [Concomitant]
     Active Substance: MEMANTINE HYDROCHLORIDE
  12. OMEPRAZOLE [Concomitant]
     Active Substance: OMEPRAZOLE
  13. CLOBETASOL [Concomitant]
     Active Substance: CLOBETASOL

REACTIONS (1)
  - Death [None]

NARRATIVE: CASE EVENT DATE: 20220805
